FAERS Safety Report 4788230-0 (Version None)
Quarter: 2005Q4

REPORT INFORMATION
  Report Type: 
  Country: None (occurrence: None)
  Receive Date: 20051004
  Receipt Date: 20051004
  Transmission Date: 20060501
  Serious: Yes (Life-Threatening, Other)
  Sender: FDA-Public Use
  Company Number: None

PATIENT
  Age: 38 Year
  Sex: Male
  Weight: 115.2136 kg

DRUGS (3)
  1. NARDIL [Suspect]
     Indication: DEPRESSION
     Dosage: 105 MG   DAILY   PO
     Route: 048
     Dates: start: 19930401, end: 20050929
  2. NARDIL [Suspect]
     Indication: DYSTHYMIC DISORDER
     Dosage: 105 MG   DAILY   PO
     Route: 048
     Dates: start: 19930401, end: 20050929
  3. NARDIL [Suspect]
     Indication: SOCIAL PHOBIA
     Dosage: 105 MG   DAILY   PO
     Route: 048
     Dates: start: 19930401, end: 20050929

REACTIONS (4)
  - DRUG INEFFECTIVE [None]
  - IMPAIRED WORK ABILITY [None]
  - PHARMACEUTICAL PRODUCT COMPLAINT [None]
  - SUICIDAL IDEATION [None]
